FAERS Safety Report 4890005-9 (Version None)
Quarter: 2006Q1

REPORT INFORMATION
  Report Type: 
  Country: None (occurrence: None)
  Receive Date: 20060124
  Receipt Date: 20060111
  Transmission Date: 20060701
  Serious: Yes (Disabling)
  Sender: FDA-Public Use
  Company Number: DE-ROCHE-431741

PATIENT
  Age: 81 Year
  Sex: Female
  Weight: 75 kg

DRUGS (10)
  1. IBANDRONATE [Suspect]
     Indication: BREAST CANCER
     Route: 042
     Dates: start: 20050316
  2. CAPECITABINE [Suspect]
     Indication: BREAST CANCER
     Dosage: AS PER PROTOCOL DOSE GIVEN ON DAYS 1 TO 14 EVERY THREE WEEKS DOSE REPORTED AS ^6 UP^
     Route: 048
     Dates: start: 20050316, end: 20051115
  3. ANASTROZOL [Suspect]
     Indication: BREAST CANCER
     Route: 048
     Dates: start: 20050719
  4. DICLOFENAC [Concomitant]
     Dates: start: 20051117
  5. DELIX 5 PLUS [Concomitant]
     Route: 048
  6. VITAMIN B COMPLEX CAP [Concomitant]
     Dosage: REPORTED AS DAILY.
     Route: 048
  7. PALLADON [Concomitant]
     Route: 048
     Dates: start: 20051117
  8. PANTOZOL [Concomitant]
     Route: 048
     Dates: start: 20051117
  9. MOVICOL [Concomitant]
     Route: 048
     Dates: start: 20051117
  10. MCP [Concomitant]
     Dosage: DOSE REPORTED AS ^130^ NO UNITS PROVIDED
     Route: 048
     Dates: start: 20051117

REACTIONS (1)
  - SPINAL COLUMN STENOSIS [None]
